FAERS Safety Report 4622437-8 (Version None)
Quarter: 2005Q1

REPORT INFORMATION
  Report Type: 
  Country: None (occurrence: None)
  Receive Date: 20050325
  Receipt Date: 20050325
  Transmission Date: 20050727
  Serious: Yes (Hospitalization)
  Sender: FDA-Public Use
  Company Number: None

PATIENT
  Sex: Male
  Weight: 3.2 kg

DRUGS (12)
  1. SYNAGIS [Suspect]
     Indication: PROPHYLAXIS
     Dosage: 48 MG IM X 1
     Route: 030
     Dates: start: 20050318
  2. SYNAGIS [Suspect]
     Indication: RESPIRATORY SYNCYTIAL VIRUS INFECTION
     Dosage: 48 MG IM X 1
     Route: 030
     Dates: start: 20050318
  3. ALBUTEROL [Concomitant]
  4. PULMICORT [Concomitant]
  5. VITAMIN D [Concomitant]
  6. FERINSOL [Concomitant]
  7. REGLAN [Concomitant]
  8. PRILOSEC [Concomitant]
  9. SIMETHICONE [Concomitant]
  10. SODIUM PHOSPHATE [Concomitant]
  11. ALDACTAZIDE [Concomitant]
  12. IMMUNIZATIONS (DTAP, COMVAX, PREVNAR, IPOL) [Concomitant]

REACTIONS (3)
  - ASPIRATION [None]
  - CHOKING [None]
  - OXYGEN SATURATION DECREASED [None]
